FAERS Safety Report 10026667 (Version 2)
Quarter: 2014Q2

REPORT INFORMATION
  Report Type: Report from Study
  Country: JP (occurrence: JP)
  Receive Date: 20140321
  Receipt Date: 20140401
  Transmission Date: 20141212
  Serious: Yes (Disabling)
  Sender: FDA-Public Use
  Company Number: JP-ROCHE-1365650

PATIENT
  Age: 48 Year
  Sex: Female
  Weight: 65 kg

DRUGS (14)
  1. TOCILIZUMAB [Suspect]
     Indication: SCLERODERMA
     Route: 041
     Dates: start: 20131112, end: 20131112
  2. TOCILIZUMAB [Suspect]
     Indication: SCLERODERMA
     Dosage: DOSAGE IS UNCERTAIN.
     Route: 041
     Dates: start: 20131210, end: 20131210
  3. TOCILIZUMAB [Suspect]
     Indication: SCLERODERMA
     Dosage: DOSAGE IS UNCERTAIN.
     Route: 041
     Dates: start: 201401, end: 201401
  4. TOCILIZUMAB [Suspect]
     Indication: SCLERODERMA
     Dosage: DOSAGE IS UNCERTAIN.
     Route: 041
     Dates: start: 20140205
  5. PREDNISOLONE [Suspect]
     Indication: SCLERODERMA
     Route: 048
     Dates: start: 2013, end: 2013
  6. PREDNISOLONE [Suspect]
     Indication: SCLERODERMA
     Route: 048
     Dates: start: 2013
  7. PREDNISOLONE [Suspect]
     Indication: SCLERODERMA
     Route: 048
     Dates: start: 2013
  8. PREDNISOLONE [Suspect]
     Indication: SCLERODERMA
     Route: 048
     Dates: start: 2014
  9. BERAPROST SODIUM [Concomitant]
     Dosage: DOSAGE IS UNCERTAIN.
     Route: 048
  10. BONALON [Concomitant]
     Dosage: DOSAGE IS UNCERTAIN.
     Route: 065
  11. EDIROL [Concomitant]
     Dosage: DOSAGE IS UNCERTAIN.
     Route: 048
  12. NEXIUM [Concomitant]
     Dosage: DOSAGE IS UNCERTAIN.
     Route: 048
  13. GASMOTIN [Concomitant]
     Dosage: DOSAGE IS UNCERTAIN.
     Route: 048
  14. BAKTAR [Concomitant]
     Dosage: DOSAGE IS UNCERTAIN.
     Route: 048

REACTIONS (3)
  - Osteonecrosis [Not Recovered/Not Resolved]
  - Osteonecrosis [Not Recovered/Not Resolved]
  - Off label use [Unknown]
